FAERS Safety Report 9478105 (Version 1)
Quarter: 2013Q3

REPORT INFORMATION
  Report Type: Spontaneous
  Country: US (occurrence: US)
  Receive Date: 20130827
  Receipt Date: 20130827
  Transmission Date: 20140515
  Serious: Yes (Hospitalization)
  Sender: FDA-Public Use
  Company Number: US-BAYER-2013-102414

PATIENT
  Age: 24 Year
  Sex: Female

DRUGS (20)
  1. OCELLA [Suspect]
  2. YAZ [Suspect]
  3. METHOTREXATE [Concomitant]
  4. ENBREL [Concomitant]
  5. MORPHINE SULFATE [Concomitant]
     Indication: PAIN
  6. AMBIEN [Concomitant]
  7. FOLIC ACID [Concomitant]
  8. VICODIN [Concomitant]
     Indication: PAIN
  9. NARATRIPTAN [Concomitant]
  10. PREDNISONE [Concomitant]
  11. CYMBALTA [Concomitant]
  12. SIMPONI [Concomitant]
  13. NUVIGIL [Concomitant]
  14. CLOBETASOL PROPIONATE [Concomitant]
  15. PROPRANOLOL [Concomitant]
  16. PERCOCET [Concomitant]
  17. TORADOL [Concomitant]
  18. HUMIRA [Concomitant]
  19. DULOXETINE [Concomitant]
  20. IBUPROFEN [Concomitant]
     Indication: MUSCULOSKELETAL DISCOMFORT

REACTIONS (1)
  - Pulmonary embolism [Not Recovered/Not Resolved]
